FAERS Safety Report 17038450 (Version 1)
Quarter: 2019Q4

REPORT INFORMATION
  Report Type: Spontaneous
  Country: US (occurrence: US)
  Receive Date: 20191115
  Receipt Date: 20191115
  Transmission Date: 20200122
  Serious: No
  Sender: FDA-Public Use
  Company Number: US-BAYER-2019-203823

PATIENT
  Age: 47 Year
  Sex: Female

DRUGS (4)
  1. HUMIRA [Concomitant]
     Active Substance: ADALIMUMAB
     Indication: RHEUMATOID ARTHRITIS
     Dosage: 40 MG, ONCE
     Route: 058
     Dates: start: 20190826, end: 20190826
  2. HUMIRA [Concomitant]
     Active Substance: ADALIMUMAB
     Indication: RHEUMATOID ARTHRITIS
     Dosage: 40 MG, ONCE
     Route: 058
     Dates: start: 20191010, end: 20191010
  3. HUMIRA [Concomitant]
     Active Substance: ADALIMUMAB
     Indication: RHEUMATOID ARTHRITIS
     Dosage: 40 MG, Q2WK
     Route: 058
     Dates: start: 20191024
  4. CLARITIN [Suspect]
     Active Substance: LORATADINE
     Indication: PRODUCT USED FOR UNKNOWN INDICATION
     Dosage: UNK
     Route: 065

REACTIONS (9)
  - Nasal congestion [Unknown]
  - Respiratory tract congestion [Unknown]
  - Cough [Unknown]
  - Hypersensitivity [Unknown]
  - Arthralgia [Unknown]
  - Feeling abnormal [Unknown]
  - Joint stiffness [Unknown]
  - Rhinorrhoea [Unknown]
  - Heart rate increased [Unknown]

NARRATIVE: CASE EVENT DATE: 2019
